FAERS Safety Report 7554369-X (Version None)
Quarter: 2011Q2

REPORT INFORMATION
  Report Type: 
  Country: None (occurrence: None)
  Receive Date: 20110614
  Receipt Date: 20110614
  Transmission Date: 20111010
  Serious: Yes (Death, Hospitalization, Other)
  Sender: FDA-Public Use
  Company Number: None

PATIENT
  Age: 39 Year
  Sex: Female
  Weight: 78.4723 kg

DRUGS (1)
  1. TIROSINT [Suspect]
     Indication: HYPOTHYROIDISM
     Dosage: 50 MCG DAILY PO
     Route: 048
     Dates: start: 20110519, end: 20110523

REACTIONS (8)
  - FLUSHING [None]
  - INTRA-UTERINE DEATH [None]
  - PALPITATIONS [None]
  - TACHYCARDIA [None]
  - INSOMNIA [None]
  - ANXIETY [None]
  - DRUG EXPOSURE DURING PREGNANCY [None]
  - HYPERTENSION [None]
